FAERS Safety Report 7352617-2 (Version None)
Quarter: 2011Q1

REPORT INFORMATION
  Report Type: 
  Country: None (occurrence: None)
  Receive Date: 20110315
  Receipt Date: 20110228
  Transmission Date: 20110831
  Serious: Yes (Hospitalization)
  Sender: FDA-Public Use
  Company Number: FR-VALEANT-2011VX000674

PATIENT
  Age: 80 Year
  Sex: Female

DRUGS (9)
  1. ALPRAZOLAM [Concomitant]
     Route: 065
  2. RAMIPRIL [Concomitant]
     Route: 065
  3. DORZOLAMIDE HYDROCHLORIDE [Concomitant]
     Route: 065
  4. ALFUZOSIN HYDROCHLORIDE [Concomitant]
     Route: 065
  5. POTASSIUM CHLORIDE [Concomitant]
     Route: 065
  6. RIVASTIGMINE [Concomitant]
     Route: 065
  7. TIMOPTIC [Suspect]
     Indication: GLAUCOMA
     Route: 047
  8. ACETAMINOPHEN [Concomitant]
     Route: 065
  9. VENLAFAXINE HYDROCHLORIDE [Concomitant]
     Route: 065

REACTIONS (1)
  - HYPOGLYCAEMIA [None]
